FAERS Safety Report 14534309 (Version 1)
Quarter: 2018Q1

REPORT INFORMATION
  Report Type: Spontaneous
  Country: US (occurrence: US)
  Receive Date: 20180214
  Receipt Date: 20180214
  Transmission Date: 20180509
  Serious: Yes (Hospitalization)
  Sender: FDA-Public Use
  Company Number: None

PATIENT
  Age: 17 Year
  Sex: Female

DRUGS (17)
  1. CYPROHEPYADINE 4 MG [Suspect]
     Active Substance: CYPROHEPTADINE
     Indication: CYSTIC FIBROSIS
     Route: 048
     Dates: start: 20151116
  2. BUDESONIDE. [Concomitant]
     Active Substance: BUDESONIDE
  3. ESOMEPRAZOLE [Concomitant]
     Active Substance: ESOMEPRAZOLE
  4. SODIUM CHLORIDE. [Concomitant]
     Active Substance: SODIUM CHLORIDE
  5. VITAMIN D3 [Concomitant]
     Active Substance: CHOLECALCIFEROL
  6. AZITHROMYCIN ANHYDROUS. [Concomitant]
     Active Substance: AZITHROMYCIN ANHYDROUS
  7. LEVOFLOXACIN. [Concomitant]
     Active Substance: LEVOFLOXACIN
  8. LINEZOLID. [Concomitant]
     Active Substance: LINEZOLID
  9. FLUCONAZOLE. [Concomitant]
     Active Substance: FLUCONAZOLE
  10. CREON [Concomitant]
     Active Substance: PANCRELIPASE AMYLASE\PANCRELIPASE LIPASE\PANCRELIPASE PROTEASE
  11. LEVALBUTEROL. [Concomitant]
     Active Substance: LEVALBUTEROL
  12. NITROFURANTN [Concomitant]
     Active Substance: NITROFURANTOIN
  13. PROMETHAZINE [Concomitant]
     Active Substance: PROMETHAZINE\PROMETHAZINE HYDROCHLORIDE
  14. DOXYCYCLINE MONO [Concomitant]
     Active Substance: DOXYCYCLINE
  15. CALCIUM [Concomitant]
     Active Substance: CALCIUM
  16. PULMOZYME [Concomitant]
     Active Substance: DORNASE ALFA
  17. DEKAS PLUS [Concomitant]

REACTIONS (1)
  - Cystic fibrosis [None]
